FAERS Safety Report 7383151-1 (Version None)
Quarter: 2011Q1

REPORT INFORMATION
  Report Type: 
  Country: None (occurrence: None)
  Receive Date: 20110330
  Receipt Date: 20110321
  Transmission Date: 20110831
  Serious: Yes (Other)
  Sender: FDA-Public Use
  Company Number: US-AMGEN-USASP2011015351

PATIENT
  Sex: Female

DRUGS (2)
  1. NEUPOGEN [Suspect]
     Indication: NEUTROPENIA
  2. ANTINEOPLASTIC AGENTS [Concomitant]

REACTIONS (10)
  - PHARYNGEAL OEDEMA [None]
  - FATIGUE [None]
  - SWELLING FACE [None]
  - WHEEZING [None]
  - LOCAL SWELLING [None]
  - CHEST DISCOMFORT [None]
  - DIZZINESS [None]
  - EYE SWELLING [None]
  - DYSPNOEA [None]
  - ASTHENIA [None]
